FAERS Safety Report 12654849 (Version 3)
Quarter: 2016Q3

REPORT INFORMATION
  Report Type: Spontaneous
  Country: US (occurrence: US)
  Receive Date: 20160816
  Receipt Date: 20160826
  Transmission Date: 20161109
  Serious: Yes (Death, Hospitalization, Other)
  Sender: FDA-Public Use
  Company Number: US-GLAXOSMITHKLINE-US2016GSK117298

PATIENT
  Age: 57 Year
  Sex: Female

DRUGS (6)
  1. REVATIO [Concomitant]
     Active Substance: SILDENAFIL CITRATE
  2. FLOLAN [Suspect]
     Active Substance: EPOPROSTENOL SODIUM
     Indication: PULMONARY ARTERIAL HYPERTENSION
     Dosage: UNK
  3. TRACLEER [Concomitant]
     Active Substance: BOSENTAN
  4. FLOLAN [Suspect]
     Active Substance: EPOPROSTENOL SODIUM
     Dosage: UNK
  5. FLOLAN [Suspect]
     Active Substance: EPOPROSTENOL SODIUM
     Indication: PULMONARY ARTERIAL HYPERTENSION
     Dosage: 39.4 NG/KG/MIN, CO
     Dates: start: 19991011
  6. COUMADIN [Concomitant]
     Active Substance: WARFARIN SODIUM

REACTIONS (5)
  - Pulmonary hypertension [Unknown]
  - Hospitalisation [Fatal]
  - Catheterisation cardiac [Unknown]
  - Death [Fatal]
  - Therapeutic procedure [Unknown]

NARRATIVE: CASE EVENT DATE: 20160718
